FAERS Safety Report 15625932 (Version 2)
Quarter: 2018Q4

REPORT INFORMATION
  Report Type: Spontaneous
  Country: JP (occurrence: JP)
  Receive Date: 20181116
  Receipt Date: 20181211
  Transmission Date: 20190205
  Serious: Yes (Other)
  Sender: FDA-Public Use
  Company Number: JP-JT-EVA201803350KERYXP-001

PATIENT
  Age: 69 Year
  Sex: Male
  Weight: 63 kg

DRUGS (9)
  1. FUTHAN [Suspect]
     Active Substance: NAFAMOSTAT MESYLATE
     Indication: HAEMORRHAGE PROPHYLAXIS
     Dosage: 30 MG, QHS
     Route: 010
     Dates: start: 20180626
  2. DIART [Concomitant]
     Active Substance: AZOSEMIDE
     Dosage: 60 MG, QD
     Route: 048
     Dates: start: 20150107
  3. PRIMPERAN [Concomitant]
     Active Substance: METOCLOPRAMIDE HYDROCHLORIDE
     Dosage: 5 MG, QD
     Route: 048
     Dates: start: 20171026
  4. RIONA [Suspect]
     Active Substance: FERRIC CITRATE ANHYDROUS
     Dosage: 250 MG, Q12HS
     Route: 048
     Dates: start: 20180621
  5. P-TOL                              /08550201/ [Concomitant]
     Dosage: 250 MG, Q12HS
     Route: 048
     Dates: start: 20180524, end: 20180607
  6. FEBURIC [Concomitant]
     Active Substance: FEBUXOSTAT
     Dosage: 10 MG, QD
     Route: 048
     Dates: start: 20150107
  7. ROCALTROL [Concomitant]
     Active Substance: CALCITRIOL
     Dosage: 0.25 MICRO-G, QD
     Route: 048
     Dates: start: 20150107
  8. TAKECAB [Concomitant]
     Active Substance: VONOPRAZAN FUMURATE
     Dosage: 20 MG, QD
     Route: 048
     Dates: start: 20170330
  9. REMITCH [Concomitant]
     Active Substance: NALFURAFINE HYDROCHLORIDE
     Dosage: 2.5 MICRO-G, QD
     Route: 048
     Dates: start: 20160630

REACTIONS (1)
  - Anaphylactic shock [Recovering/Resolving]

NARRATIVE: CASE EVENT DATE: 20180626
